FAERS Safety Report 6999484-4 (Version None)
Quarter: 2010Q3

REPORT INFORMATION
  Report Type: 
  Country: None (occurrence: None)
  Receive Date: 20100920
  Receipt Date: 20090713
  Transmission Date: 20110219
  Serious: Yes (Other)
  Sender: FDA-Public Use
  Company Number: US-ASTRAZENECA-2005UW13875

PATIENT
  Age: 15 Year
  Sex: Male
  Weight: 159.2 kg

DRUGS (25)
  1. SEROQUEL [Suspect]
     Route: 048
     Dates: start: 20000201, end: 20020401
  2. SEROQUEL [Suspect]
     Route: 048
     Dates: start: 20000817
  3. ZYPREXA [Suspect]
     Indication: HALLUCINATION, AUDITORY
     Dates: start: 19981005
  4. ZYPREXA [Suspect]
     Dates: start: 20000201, end: 20030101
  5. TOPAMAX [Concomitant]
     Route: 048
     Dates: end: 20030401
  6. ADDERALL 10 [Concomitant]
     Dates: start: 20040130
  7. DEPAKOTE [Concomitant]
     Route: 048
  8. RITALIN [Concomitant]
     Route: 048
     Dates: start: 19970101
  9. WELLBUTRIN [Concomitant]
     Dosage: FREQUENCY: DAILY, TOTAL DAILY DOSE: 150 MG
     Route: 048
  10. TYLENOL [Concomitant]
     Dosage: FREQUENCY: AS REQUIRED
  11. PROVENTIL [Concomitant]
     Indication: ASTHMA
     Dosage: 2 PUFFS AS REQUIRED
     Route: 055
  12. HALDOL [Concomitant]
     Route: 048
  13. VISTARIL [Concomitant]
     Indication: AGITATION
     Route: 048
  14. ALBUTEROL [Concomitant]
     Route: 055
  15. INSULIN [Concomitant]
     Dates: start: 20030922
  16. CLONIDINE [Concomitant]
     Dates: start: 19970101
  17. METADATE SR [Concomitant]
  18. CALADRYL CREAM [Concomitant]
     Indication: DERMATITIS CONTACT
     Dates: start: 19970101
  19. TRAZODONE HCL [Concomitant]
     Dates: end: 19970620
  20. REGULAR NPH INSULIN [Concomitant]
     Dates: start: 20050101
  21. LUVOX [Concomitant]
     Route: 048
     Dates: start: 19970101
  22. BACTRIM [Concomitant]
     Dosage: DOSE: 1 FREQUENCY: TWO TIMES A DAY
     Route: 048
     Dates: start: 19980730, end: 19980810
  23. AMOXIL [Concomitant]
  24. SINGULAIR [Concomitant]
     Route: 048
     Dates: start: 20051003
  25. AMOXICILLIN [Concomitant]
     Indication: OTITIS MEDIA
     Route: 048
     Dates: start: 20071210

REACTIONS (9)
  - CORNEAL ABRASION [None]
  - DIABETES MELLITUS [None]
  - DIABETES MELLITUS INADEQUATE CONTROL [None]
  - HYPERCHOLESTEROLAEMIA [None]
  - INSOMNIA [None]
  - RESPIRATORY TRACT INFECTION [None]
  - SKIN DISORDER [None]
  - TINEA PEDIS [None]
  - TYPE 1 DIABETES MELLITUS [None]
